FAERS Safety Report 22073799 (Version 4)
Quarter: 2025Q1

REPORT INFORMATION
  Report Type: Spontaneous
  Country: IN (occurrence: IN)
  Receive Date: 20230308
  Receipt Date: 20250303
  Transmission Date: 20250409
  Serious: Yes (Other)
  Sender: PFIZER
  Company Number: IN-PFIZER INC-PV202200070778

PATIENT
  Age: 69 Year
  Sex: Female

DRUGS (3)
  1. LORLATINIB [Suspect]
     Active Substance: LORLATINIB
     Indication: Lung neoplasm malignant
     Dosage: 100 MG, 1X/DAY
     Route: 048
     Dates: start: 20220811
  2. ROSUVASTATIN CALCIUM [Concomitant]
     Active Substance: ROSUVASTATIN CALCIUM
     Dosage: 20 MG, 1X/DAY
  3. FEXOFENADINE\MONTELUKAST [Concomitant]
     Active Substance: FEXOFENADINE\MONTELUKAST
     Dosage: 1 DF, 1X/DAY

REACTIONS (5)
  - Glycosylated haemoglobin increased [Unknown]
  - Carcinoembryonic antigen increased [Unknown]
  - Weight increased [Unknown]
  - Cough [Unknown]
  - Rhinorrhoea [Unknown]

NARRATIVE: CASE EVENT DATE: 20230302
